FAERS Safety Report 6775056-1 (Version None)
Quarter: 2010Q2

REPORT INFORMATION
  Report Type: 
  Country: None (occurrence: None)
  Receive Date: 20100617
  Receipt Date: 20100607
  Transmission Date: 20101027
  Serious: Yes (Hospitalization, Other)
  Sender: FDA-Public Use
  Company Number: B0614655A

PATIENT
  Age: 58 Year
  Sex: Male

DRUGS (4)
  1. PROPAFENONE HCL [Suspect]
     Indication: ATRIAL FIBRILLATION
     Dosage: 300MG TWICE PER DAY
     Route: 065
  2. BISOPROLOL [Suspect]
     Route: 065
  3. WARFARIN [Suspect]
     Route: 065
  4. DIGOXIN [Concomitant]
     Route: 065

REACTIONS (8)
  - ATRIAL TACHYCARDIA [None]
  - CHEST DISCOMFORT [None]
  - CIRCULATORY COLLAPSE [None]
  - CONDUCTION DISORDER [None]
  - MALAISE [None]
  - PALLOR [None]
  - PALPITATIONS [None]
  - PRESYNCOPE [None]
